FAERS Safety Report 8598467-0 (Version None)
Quarter: 2012Q3

REPORT INFORMATION
  Report Type: 
  Country: None (occurrence: None)
  Receive Date: 20120816
  Receipt Date: 20120809
  Transmission Date: 20120928
  Serious: Yes (Other)
  Sender: FDA-Public Use
  Company Number: PHHY2012BR069602

PATIENT
  Sex: Female
  Weight: 45 kg

DRUGS (3)
  1. AMLODIPINE BESYLATE [Concomitant]
     Indication: HYPERTENSION
     Dosage: 5 MG, BID
     Route: 048
  2. TRILEPTAL [Suspect]
     Indication: SYNCOPE
  3. TRILEPTAL [Suspect]
     Indication: MEMORY IMPAIRMENT
     Dosage: 300 MG, DAILY
     Route: 048

REACTIONS (17)
  - ANAEMIA [None]
  - HEAD INJURY [None]
  - WRIST FRACTURE [None]
  - BACK PAIN [None]
  - FALL [None]
  - TREMOR [None]
  - ARTHRALGIA [None]
  - WHITE BLOOD CELL COUNT DECREASED [None]
  - RENAL PAIN [None]
  - MEMORY IMPAIRMENT [None]
  - SYNCOPE [None]
  - WEIGHT DECREASED [None]
  - COUGH [None]
  - LABYRINTHITIS [None]
  - BLADDER PAIN [None]
  - ARRHYTHMIA [None]
  - DYSPEPSIA [None]
